FAERS Safety Report 18079329 (Version 1)
Quarter: 2020Q3

REPORT INFORMATION
  Report Type: Spontaneous
  Country: RU (occurrence: RU)
  Receive Date: 20200728
  Receipt Date: 20200728
  Transmission Date: 20201103
  Serious: Yes (Hospitalization)
  Sender: FDA-Public Use
  Company Number: RU-B.I. PHARMACEUTICALS,INC./RIDGEFIELD-2020-BI-036725

PATIENT
  Age: 38 Year
  Sex: Female

DRUGS (3)
  1. MOVALIS [Suspect]
     Active Substance: MELOXICAM
     Indication: BACK PAIN
     Route: 030
     Dates: start: 20200716, end: 20200716
  2. ACTOVEGIN [Concomitant]
     Active Substance: BLOOD, BOVINE
     Indication: BACK PAIN
     Route: 042
     Dates: start: 20200716
  3. MYDOCALM RICHTER [Concomitant]
     Indication: BACK PAIN
     Route: 065
     Dates: start: 20200716

REACTIONS (2)
  - Anaphylactic shock [Recovering/Resolving]
  - Product quality issue [Recovered/Resolved]

NARRATIVE: CASE EVENT DATE: 20200716
